FAERS Safety Report 11288691 (Version 1)
Quarter: 2015Q3

REPORT INFORMATION
  Report Type: Spontaneous
  Country: US (occurrence: US)
  Receive Date: 20150721
  Receipt Date: 20150721
  Transmission Date: 20151125
  Serious: No
  Sender: FDA-Public Use
  Company Number: US-UNITED THERAPEUTICS-UNT-2015-003635

PATIENT
  Age: 51 Year
  Sex: Female
  Weight: 78.46 kg

DRUGS (7)
  1. REMODULIN [Suspect]
     Active Substance: TREPROSTINIL
     Dosage: 0.016 ?G/KG/MIN, CONTINUING
     Route: 058
     Dates: start: 20150116
  2. REMODULIN [Suspect]
     Active Substance: TREPROSTINIL
     Dosage: 0.023 ?G/KG/MIN, CONTINUING
     Route: 058
     Dates: start: 20150409
  3. OPSUMIT [Concomitant]
     Active Substance: MACITENTAN
     Indication: PRODUCT USED FOR UNKNOWN INDICATION
  4. REMODULIN [Suspect]
     Active Substance: TREPROSTINIL
     Indication: PULMONARY ARTERIAL HYPERTENSION
     Dosage: 0.016 ?G/KG/MIN, CONTINUING
     Route: 058
     Dates: start: 20150114
  5. ASPIRIN                            /00002701/ [Concomitant]
     Active Substance: ASPIRIN
     Indication: PRODUCT USED FOR UNKNOWN INDICATION
  6. REMODULIN [Suspect]
     Active Substance: TREPROSTINIL
     Dosage: 0.023 ?G/KG/MIN, CONTINUING
     Route: 058
     Dates: start: 20150116
  7. REMODULIN [Suspect]
     Active Substance: TREPROSTINIL
     Dosage: 0.022 ?G/KG/MIN, CONTINUING
     Route: 058

REACTIONS (7)
  - Infusion site rash [Not Recovered/Not Resolved]
  - Underdose [Unknown]
  - Dyspnoea [Unknown]
  - Device use error [Recovered/Resolved]
  - Fatigue [Unknown]
  - Infusion site erythema [Not Recovered/Not Resolved]
  - Rash [Unknown]

NARRATIVE: CASE EVENT DATE: 201504
